FAERS Safety Report 23986932 (Version 1)
Quarter: 2024Q2

REPORT INFORMATION
  Report Type: Spontaneous
  Country: US (occurrence: US)
  Receive Date: 20240618
  Receipt Date: 20240618
  Transmission Date: 20240716
  Serious: Yes (Hospitalization)
  Sender: FDA-Public Use
  Company Number: US-ELI_LILLY_AND_COMPANY-US202406006701

PATIENT
  Age: 59 Year
  Sex: Male

DRUGS (3)
  1. MOUNJARO [Suspect]
     Active Substance: TIRZEPATIDE
     Indication: Product used for unknown indication
     Dosage: UNK UNK, UNKNOWN
     Route: 065
  2. OFEV [Suspect]
     Active Substance: NINTEDANIB
     Indication: Idiopathic pulmonary fibrosis
     Dosage: 300 MG, DAILY
     Route: 048
     Dates: start: 20231124
  3. OFEV [Suspect]
     Active Substance: NINTEDANIB
     Dosage: 200 MG, DAILY
     Route: 048

REACTIONS (15)
  - Anxiety [Unknown]
  - Oxygen saturation decreased [Unknown]
  - Hypotension [Unknown]
  - Gastrointestinal sounds abnormal [Not Recovered/Not Resolved]
  - Osteoporosis [Not Recovered/Not Resolved]
  - Rhinorrhoea [Not Recovered/Not Resolved]
  - Depressed mood [Unknown]
  - Faecaloma [Unknown]
  - Sputum increased [Unknown]
  - Weight decreased [Unknown]
  - Throat clearing [Not Recovered/Not Resolved]
  - Diarrhoea [Not Recovered/Not Resolved]
  - Diarrhoea [Recovered/Resolved]
  - Abdominal discomfort [Not Recovered/Not Resolved]
  - Constipation [Unknown]

NARRATIVE: CASE EVENT DATE: 20231101
